FAERS Safety Report 17218258 (Version 2)
Quarter: 2020Q1

REPORT INFORMATION
  Report Type: Spontaneous
  Country: CA (occurrence: CA)
  Receive Date: 20191231
  Receipt Date: 20200211
  Transmission Date: 20200409
  Serious: Yes (Death, Life-Threatening, Hospitalization, Other)
  Sender: FDA-Public Use
  Company Number: CA-AUROBINDO-AUR-APL-2019-107063

PATIENT
  Age: 40 Year

DRUGS (14)
  1. ACETYLSALICYLIC ACID [Interacting]
     Active Substance: ASPIRIN
     Indication: CEREBRAL INFARCTION
     Dosage: 81 MILLIGRAM, ONCE A DAY
     Route: 065
  2. CLOPIDOGREL [Interacting]
     Active Substance: CLOPIDOGREL BISULFATE
     Indication: TRANSIENT ISCHAEMIC ATTACK
     Dosage: 300 MILLIGRAM
     Route: 065
  3. HEPARIN [Interacting]
     Active Substance: HEPARIN SODIUM
     Indication: TRANSIENT ISCHAEMIC ATTACK
     Dosage: UNK
     Route: 041
  4. HIDROXICLOROQUINA [Concomitant]
     Active Substance: HYDROXYCHLOROQUINE
     Indication: SYSTEMIC LUPUS ERYTHEMATOSUS
     Dosage: UNK
     Route: 065
  5. METHOTREXATE. [Concomitant]
     Active Substance: METHOTREXATE
     Indication: SYSTEMIC LUPUS ERYTHEMATOSUS
     Dosage: UNK
     Route: 065
  6. AZATHIOPRINE. [Concomitant]
     Active Substance: AZATHIOPRINE
     Indication: SYSTEMIC LUPUS ERYTHEMATOSUS
     Dosage: UNK
     Route: 065
  7. RIVAROXABAN [Interacting]
     Active Substance: RIVAROXABAN
     Dosage: 15 MILLIGRAM, TWO TIMES A DAY
     Route: 065
  8. CLOPIDOGREL [Suspect]
     Active Substance: CLOPIDOGREL BISULFATE
     Indication: THROMBOSIS
     Dosage: 75 MILLIGRAM, ONCE A DAY
     Route: 065
  9. RIVAROXABAN [Interacting]
     Active Substance: RIVAROXABAN
     Indication: CARDIAC VENTRICULAR THROMBOSIS
     Dosage: 15 MILLIGRAM, TWO TIMES A DAY
     Route: 065
  10. HEPARIN [Interacting]
     Active Substance: HEPARIN SODIUM
     Indication: CARDIAC VENTRICULAR THROMBOSIS
  11. CLOPIDOGREL [Interacting]
     Active Substance: CLOPIDOGREL BISULFATE
     Indication: CARDIAC VENTRICULAR THROMBOSIS
  12. RIVAROXABAN [Interacting]
     Active Substance: RIVAROXABAN
     Indication: VENOUS THROMBOSIS
     Dosage: 20 MILLIGRAM, ONCE A DAY
     Route: 065
  13. HEPARIN [Interacting]
     Active Substance: HEPARIN SODIUM
     Indication: THROMBOSIS
     Dosage: UNK
     Route: 042
  14. PREDNISONE. [Concomitant]
     Active Substance: PREDNISONE
     Indication: SYSTEMIC LUPUS ERYTHEMATOSUS
     Dosage: UNK
     Route: 065

REACTIONS (9)
  - Abdominal pain [Fatal]
  - Drug interaction [Fatal]
  - Retroperitoneal haemorrhage [Fatal]
  - Cardiac arrest [Fatal]
  - Hyporesponsive to stimuli [Fatal]
  - Respiratory rate decreased [Fatal]
  - Haemoglobin decreased [Fatal]
  - Off label use [Fatal]
  - Blood pressure decreased [Fatal]
